FAERS Safety Report 6056817-3 (Version None)
Quarter: 2009Q1

REPORT INFORMATION
  Report Type: 
  Country: None (occurrence: None)
  Receive Date: 20090129
  Receipt Date: 20090123
  Transmission Date: 20090719
  Serious: Yes (Hospitalization)
  Sender: FDA-Public Use
  Company Number: JP-PFIZER INC-2008090381

PATIENT

DRUGS (2)
  1. SALAZOPYRIN [Suspect]
     Indication: PROCTITIS
     Dosage: 500 MG
     Route: 048
     Dates: start: 20081004, end: 20081014
  2. LOXONIN [Suspect]
     Indication: BACK PAIN
     Dosage: 60 MG
     Route: 048
     Dates: start: 20081013, end: 20081014

REACTIONS (1)
  - DRUG ERUPTION [None]
